FAERS Safety Report 25777378 (Version 1)
Quarter: 2025Q3

REPORT INFORMATION
  Report Type: Spontaneous
  Country: US (occurrence: US)
  Receive Date: 20250909
  Receipt Date: 20250909
  Transmission Date: 20251020
  Serious: No
  Sender: GALDERMA
  Company Number: US-GALDERMA-US2025015380

PATIENT

DRUGS (1)
  1. NEMLUVIO [Suspect]
     Active Substance: NEMOLIZUMAB-ILTO
     Indication: Neurodermatitis
     Route: 058

REACTIONS (6)
  - Skin mass [Recovered/Resolved]
  - Rash [Unknown]
  - Eczema [Unknown]
  - Alopecia [Unknown]
  - Dry skin [Unknown]
  - Skin exfoliation [Unknown]
